FAERS Safety Report 14109516 (Version 1)
Quarter: 2017Q4

REPORT INFORMATION
  Report Type: Spontaneous
  Country: FR (occurrence: FR)
  Receive Date: 20171020
  Receipt Date: 20171020
  Transmission Date: 20180321
  Serious: Yes (Hospitalization)
  Sender: FDA-Public Use
  Company Number: FR-ABBVIE-17K-056-2133756-00

PATIENT
  Age: 30 Year
  Sex: Male

DRUGS (1)
  1. HUMIRA [Suspect]
     Active Substance: ADALIMUMAB
     Indication: CROHN^S DISEASE
     Route: 058
     Dates: start: 20170912, end: 20170912

REACTIONS (7)
  - Asthenia [Recovered/Resolved]
  - Vertigo [Recovered/Resolved]
  - Pyrexia [Recovered/Resolved]
  - Photopsia [Recovered/Resolved]
  - Tinnitus [Recovered/Resolved]
  - Appendicitis [Unknown]
  - Colitis [Unknown]

NARRATIVE: CASE EVENT DATE: 2017
